FAERS Safety Report 4713535-9 (Version None)
Quarter: 2005Q3

REPORT INFORMATION
  Report Type: 
  Country: None (occurrence: None)
  Receive Date: 20050711
  Receipt Date: 20050628
  Transmission Date: 20060218
  Serious: Yes (Other)
  Sender: FDA-Public Use
  Company Number: 2005096569

PATIENT

DRUGS (2)
  1. ATARAX [Suspect]
     Indication: DECUBITUS ULCER
     Dosage: INRAMUSCULAR
     Route: 030
     Dates: start: 20050627
  2. ATARAX [Suspect]

REACTIONS (1)
  - PYREXIA [None]
